FAERS Safety Report 9963587 (Version 2)
Quarter: 2014Q1

REPORT INFORMATION
  Report Type: Report from Study
  Country: FR (occurrence: FR)
  Receive Date: 20140305
  Receipt Date: 20140305
  Transmission Date: 20141002
  Serious: Yes (Hospitalization, Other)
  Sender: FDA-Public Use
  Company Number: PHHO2011FR03556

PATIENT
  Sex: 0

DRUGS (3)
  1. EVEROLIMUS [Suspect]
     Indication: HEPATOCELLULAR CARCINOMA
     Dosage: 7.5 MG DAILY
     Route: 048
     Dates: start: 20101221, end: 20110220
  2. DUROGESIC [Concomitant]
     Indication: ABDOMINAL PAIN
  3. FENTANYL CITRATE [Concomitant]
     Indication: ABDOMINAL PAIN

REACTIONS (2)
  - Tumour necrosis [Not Recovered/Not Resolved]
  - Abdominal pain [Not Recovered/Not Resolved]
